FAERS Safety Report 8600649 (Version 3)
Quarter: 2012Q4

REPORT INFORMATION
  Report Type: 
  Country: CA (occurrence: CA)
  Receive Date: 20120606
  Receipt Date: 20121016
  Transmission Date: 20130627
  Serious: Yes (Death, Hospitalization)
  Sender: FDA-Public Use
  Company Number: PHHY2012CA047798

PATIENT
  Sex: Female

DRUGS (4)
  1. ZOMETA [Suspect]
     Indication: METASTASES TO BONE
     Dosage: 4 mg, every 3 weeks
     Route: 042
     Dates: start: 20110505, end: 20120525
  2. ZOMETA [Suspect]
     Dosage: 4 mg, every 3 weeks
     Route: 042
     Dates: start: 20120528
  3. PACLITAXEL [Concomitant]
     Dosage: UNK UKN, UNK
     Dates: start: 20110519, end: 20111220
  4. CAPECITABINE [Concomitant]
     Dosage: UNK UKN, UNK
     Dates: start: 20110106, end: 201205

REACTIONS (7)
  - Neoplasm progression [Fatal]
  - Pleural effusion [Fatal]
  - Metastases to liver [Fatal]
  - Malignant neoplasm progression [Fatal]
  - Pancreatic duct dilatation [Fatal]
  - Jaundice cholestatic [Not Recovered/Not Resolved]
  - Dyspnoea [Not Recovered/Not Resolved]
